FAERS Safety Report 24904851 (Version 1)
Quarter: 2025Q1

REPORT INFORMATION
  Report Type: Spontaneous
  Country: FR (occurrence: FR)
  Receive Date: 20250130
  Receipt Date: 20250130
  Transmission Date: 20250408
  Serious: Yes (Other)
  Sender: GRIFOLS
  Company Number: FR-IGSA-BIG0032712

PATIENT
  Sex: Female

DRUGS (1)
  1. XEMBIFY [Suspect]
     Active Substance: HUMAN IMMUNOGLOBULIN G
     Indication: Immunodeficiency
     Dosage: 5 GRAM, Q.WK.
     Route: 058

REACTIONS (4)
  - Infusion site plaque [Recovered/Resolved]
  - Wound [Recovered/Resolved]
  - Infusion site necrosis [Recovered/Resolved]
  - Infusion site erythema [Recovered/Resolved]
